FAERS Safety Report 17453778 (Version 1)
Quarter: 2020Q1

REPORT INFORMATION
  Report Type: Spontaneous
  Country: DE (occurrence: DE)
  Receive Date: 20200224
  Receipt Date: 20200224
  Transmission Date: 20200409
  Serious: Yes (Hospitalization)
  Sender: FDA-Public Use
  Company Number: DE-NOVOPROD-712907

PATIENT
  Age: 17 Year
  Sex: Female
  Weight: 70 kg

DRUGS (1)
  1. NOVORAPID [Suspect]
     Active Substance: INSULIN ASPART
     Indication: DIABETES MELLITUS
     Dosage: 50 IU, QD (CONTINUOUS SUBCUTANEOUS INSULIN INFUSION)
     Route: 058
     Dates: start: 2014

REACTIONS (3)
  - Injection site abscess [Recovering/Resolving]
  - Product substitution issue [Unknown]
  - Product impurity [Unknown]

NARRATIVE: CASE EVENT DATE: 20200201
